FAERS Safety Report 5307985-X (Version None)
Quarter: 2007Q2

REPORT INFORMATION
  Report Type: 
  Country: None (occurrence: None)
  Receive Date: 20070426
  Receipt Date: 20070418
  Transmission Date: 20071010
  Serious: Yes (Life-Threatening, Other)
  Sender: FDA-Public Use
  Company Number: 2006AP02467

PATIENT
  Age: 70 Year
  Sex: Female
  Weight: 46 kg

DRUGS (14)
  1. ANAPEINE [Suspect]
     Indication: EPIDURAL ANAESTHESIA
     Route: 008
  2. OXYGEN [Concomitant]
     Indication: MAINTENANCE OF ANAESTHESIA
     Route: 055
  3. PROPOFOL [Concomitant]
     Indication: INDUCTION OF ANAESTHESIA
     Route: 042
  4. PROPOFOL [Concomitant]
     Indication: MAINTENANCE OF ANAESTHESIA
     Route: 042
  5. PROPOFOL [Concomitant]
     Route: 042
  6. PROPOFOL [Concomitant]
     Route: 042
  7. FENTANYL CITRATE [Concomitant]
     Indication: INDUCTION OF ANAESTHESIA
     Route: 042
  8. FENTANYL CITRATE [Concomitant]
     Indication: MAINTENANCE OF ANAESTHESIA
     Route: 042
  9. FENTANYL CITRATE [Concomitant]
     Route: 042
  10. FENTANYL CITRATE [Concomitant]
     Route: 042
  11. VECURONIUM BROMIDE [Concomitant]
     Indication: INDUCTION OF ANAESTHESIA
     Route: 042
  12. VECURONIUM BROMIDE [Concomitant]
     Indication: MAINTENANCE OF ANAESTHESIA
     Route: 042
  13. VECURONIUM BROMIDE [Concomitant]
     Route: 042
  14. VECURONIUM BROMIDE [Concomitant]
     Route: 042

REACTIONS (1)
  - ARTERIOSPASM CORONARY [None]
